FAERS Safety Report 5834880-X (Version None)
Quarter: 2008Q3

REPORT INFORMATION
  Report Type: 
  Country: None (occurrence: None)
  Receive Date: 20080801
  Receipt Date: 20080721
  Transmission Date: 20090109
  Serious: Yes (Other)
  Sender: FDA-Public Use
  Company Number: GXKR2008JP06876

PATIENT
  Age: 19 Year
  Sex: Male

DRUGS (4)
  1. PREDNISOLONE [Suspect]
     Indication: WEGENER'S GRANULOMATOSIS
     Dosage: 60 MG, QD, ORAL 45 MG, QD
     Route: 048
  2. METHYLPREDNISOLONE [Suspect]
     Indication: WEGENER'S GRANULOMATOSIS
     Dosage: 500 MG, QD
  3. CYCLOSPORINE [Suspect]
     Indication: WEGENER'S GRANULOMATOSIS
     Dosage: 150 MG, QD
  4. CYCLOPHOSPHAMIDE [Suspect]
     Indication: WEGENER'S GRANULOMATOSIS
     Dosage: INTRAVENOUS
     Route: 042

REACTIONS (9)
  - BLOOD IMMUNOGLOBULIN G DECREASED [None]
  - DISEASE RECURRENCE [None]
  - HEPATOTOXICITY [None]
  - IMMUNOSUPPRESSION [None]
  - LEUKOCYTOSIS [None]
  - LYMPHOCYTE COUNT DECREASED [None]
  - NOCARDIOSIS [None]
  - PULMONARY MASS [None]
  - WEGENER'S GRANULOMATOSIS [None]
